FAERS Safety Report 4912744-3 (Version None)
Quarter: 2006Q1

REPORT INFORMATION
  Report Type: 
  Country: None (occurrence: None)
  Receive Date: 20060215
  Receipt Date: 20051129
  Transmission Date: 20060701
  Serious: Yes (Life-Threatening)
  Sender: FDA-Public Use
  Company Number: 2005SE06887

PATIENT
  Age: 15732 Day
  Sex: Female

DRUGS (2)
  1. NEXIUM [Suspect]
     Indication: GASTRODUODENITIS
     Route: 048
     Dates: start: 20051123, end: 20051123
  2. ASPIRIN [Suspect]
     Indication: HEART DISEASE CONGENITAL
     Route: 048
     Dates: start: 20051123

REACTIONS (4)
  - CHOKING SENSATION [None]
  - DERMATITIS [None]
  - LARYNGEAL OEDEMA [None]
  - RASH PUSTULAR [None]
